FAERS Safety Report 16576729 (Version 1)
Quarter: 2019Q3

REPORT INFORMATION
  Report Type: Spontaneous
  Country: DK (occurrence: DK)
  Receive Date: 20190716
  Receipt Date: 20190716
  Transmission Date: 20191004
  Serious: Yes (Hospitalization)
  Sender: FDA-Public Use
  Company Number: DK-TEVA-2019-DK-1077004

PATIENT
  Age: 54 Year
  Sex: Female

DRUGS (2)
  1. EPIRUBICIN ^TEVA^ [Suspect]
     Active Substance: EPIRUBICIN
     Indication: BREAST CANCER
     Dosage: STRENGTH: 2 MG/ML
     Route: 042
     Dates: start: 20171107, end: 20171107
  2. CYCLOPHOSPHAMIDE. [Concomitant]
     Active Substance: CYCLOPHOSPHAMIDE
     Indication: BREAST CANCER
     Dosage: STRENGTH: 200 MG.
     Route: 042
     Dates: start: 20171107, end: 20171107

REACTIONS (10)
  - Infusion site irritation [Unknown]
  - Arthralgia [Unknown]
  - Infusion site swelling [Unknown]
  - Joint lock [Unknown]
  - Hypokinesia [Not Recovered/Not Resolved]
  - Muscular weakness [Unknown]
  - Vascular pain [Unknown]
  - Pain in extremity [Unknown]
  - Infusion site discolouration [Unknown]
  - Infusion site erythema [Recovering/Resolving]

NARRATIVE: CASE EVENT DATE: 20171107
